FAERS Safety Report 8707456 (Version 3)
Quarter: 2013Q1

REPORT INFORMATION
  Report Type: Spontaneous
  Country: US (occurrence: US)
  Receive Date: 20120804
  Receipt Date: 20130122
  Transmission Date: 20140127
  Serious: No
  Sender: FDA-Public Use
  Company Number: US-009507513-2012SP036404

PATIENT
  Age: 49 Year
  Sex: Female
  Weight: 71.67 kg

DRUGS (7)
  1. VICTRELIS [Suspect]
     Indication: HEPATITIS C
     Dosage: 800 MG, TID
     Route: 048
  2. RIBAVIRIN [Suspect]
     Indication: HEPATITIS C
     Dosage: UNK
     Route: 048
  3. PEGASYS [Suspect]
     Indication: HEPATITIS C
     Dosage: UNK
  4. IBUPROFEN [Concomitant]
     Dosage: UNK
     Route: 048
  5. VESICARE [Concomitant]
     Dosage: UNK
     Route: 048
  6. VIMOVO [Concomitant]
     Dosage: UNK
     Route: 048
  7. NEUPOGEN [Concomitant]
     Dosage: UNK

REACTIONS (6)
  - White blood cell count increased [Unknown]
  - Sputum increased [Unknown]
  - Neutropenia [Unknown]
  - Dysgeusia [Unknown]
  - Anaemia [Unknown]
  - Drug ineffective [Unknown]
